FAERS Safety Report 4320551-8 (Version None)
Quarter: 2004Q1

REPORT INFORMATION
  Report Type: 
  Country: None (occurrence: None)
  Receive Date: 20040319
  Receipt Date: 20040319
  Transmission Date: 20041129
  Serious: Yes (Hospitalization)
  Sender: FDA-Public Use
  Company Number: None

PATIENT
  Age: 58 Year
  Sex: Male
  Weight: 94.3482 kg

DRUGS (1)
  1. TOPROL-XL [Suspect]
     Dosage: X1 DOSE

REACTIONS (6)
  - ANGIONEUROTIC OEDEMA [None]
  - CHEST PAIN [None]
  - OROPHARYNGEAL SWELLING [None]
  - PERIORBITAL OEDEMA [None]
  - SWELLING FACE [None]
  - SWOLLEN TONGUE [None]
